FAERS Safety Report 8091516-8 (Version None)
Quarter: 2012Q1

REPORT INFORMATION
  Report Type: 
  Country: None (occurrence: None)
  Receive Date: 20120131
  Receipt Date: 20120125
  Transmission Date: 20120608
  Serious: Yes (Other)
  Sender: FDA-Public Use
  Company Number: JP-BAYER-2012-008501

PATIENT
  Age: 70 Year
  Sex: Male
  Weight: 53 kg

DRUGS (2)
  1. NEXAVAR [Suspect]
     Indication: RENAL CELL CARCINOMA
     Dosage: DAILY DOSE 800 MG
     Route: 048
  2. NEXAVAR [Suspect]
     Dosage: DAILY DOSE 400 MG
     Route: 048

REACTIONS (4)
  - ASPARTATE AMINOTRANSFERASE INCREASED [None]
  - GASTRIC ULCER [None]
  - ALANINE AMINOTRANSFERASE INCREASED [None]
  - PALMAR-PLANTAR ERYTHRODYSAESTHESIA SYNDROME [None]
